FAERS Safety Report 9572331 (Version 1)
Quarter: 2013Q3

REPORT INFORMATION
  Report Type: Spontaneous
  Country: BR (occurrence: None)
  Receive Date: 20130927
  Receipt Date: 20130927
  Transmission Date: 20140515
  Serious: Yes (Hospitalization, Other)
  Sender: FDA-Public Use
  Company Number: VAL_02748_2013

PATIENT
  Age: 88 Year
  Sex: Female

DRUGS (8)
  1. LOPRESSOR [Suspect]
     Indication: PRODUCT USED FOR UNKNOWN INDICATION
     Dosage: (50 MG QD)
  2. FORASEQ [Suspect]
     Indication: PRODUCT USED FOR UNKNOWN INDICATION
     Dosage: (12/400 UG ONCE A DAY)
  3. OMEPRAZOLE [Suspect]
     Indication: PRODUCT USED FOR UNKNOWN INDICATION
     Dosage: (DF [REGIMEN #1] )
  4. SERTRALINE [Suspect]
     Indication: PRODUCT USED FOR UNKNOWN INDICATION
     Dosage: (DF [REGIMEN #1])
  5. LEVOFLOXACIN [Suspect]
     Indication: PRODUCT USED FOR UNKNOWN INDICATION
  6. TIOTROPIUM [Suspect]
     Dosage: (1 DF QD, [REGIMEN #1] )
  7. BROMOPRIDE [Suspect]
     Indication: PRODUCT USED FOR UNKNOWN INDICATION
     Dosage: (DF [REGIMEN #1] )
  8. GLUCOSAMINE + CHONDROITIN [Suspect]
     Indication: PRODUCT USED FOR UNKNOWN INDICATION
     Dosage: (DF [REGIMEN #1] )

REACTIONS (13)
  - Cholecystitis acute [None]
  - Emphysema [None]
  - Ventricular extrasystoles [None]
  - Osteoarthritis [None]
  - Influenza [None]
  - Sputum discoloured [None]
  - Pre-existing disease [None]
  - Condition aggravated [None]
  - Mobility decreased [None]
  - Dyspnoea [None]
  - Dilatation atrial [None]
  - Total lung capacity decreased [None]
  - Obstructive airways disorder [None]
